FAERS Safety Report 8402073-8 (Version None)
Quarter: 2012Q2

REPORT INFORMATION
  Report Type: 
  Country: None (occurrence: None)
  Receive Date: 20120601
  Receipt Date: 20120529
  Transmission Date: 20120825
  Serious: Yes (Other)
  Sender: FDA-Public Use
  Company Number: PHHY2011GB18009

PATIENT
  Age: 37 Year
  Sex: Female

DRUGS (4)
  1. ACETAMINOPHEN AND CODEINE PHOSPHATE [Suspect]
     Indication: SYMPHYSIOLYSIS
  2. MORPHINE [Suspect]
     Indication: SYMPHYSIOLYSIS
     Dosage: 5 MG, BID
     Dates: start: 20100922
  3. ACETAMINOPHEN [Suspect]
     Indication: SYMPHYSIOLYSIS
     Dosage: 1 G, UNK
  4. BUPRENORPHINE [Suspect]
     Indication: SYMPHYSIOLYSIS
     Dosage: 10 UG/HR, UNK
     Route: 062
     Dates: start: 20101215, end: 20101229

REACTIONS (3)
  - MATERNAL EXPOSURE DURING PREGNANCY [None]
  - FOETAL DEATH [None]
  - INADEQUATE ANALGESIA [None]
